FAERS Safety Report 7479605-X (Version None)
Quarter: 2011Q2

REPORT INFORMATION
  Report Type: 
  Country: None (occurrence: None)
  Receive Date: 20110513
  Receipt Date: 20090930
  Transmission Date: 20111010
  Serious: Yes (Other)
  Sender: FDA-Public Use
  Company Number: US-BAYER-2011-007564

PATIENT
  Sex: Female
  Weight: 81.633 kg

DRUGS (22)
  1. EPINEPHRINE [Concomitant]
     Dosage: 0.04
     Route: 042
     Dates: start: 20041027, end: 20041028
  2. PROTAMINE SULFATE [Concomitant]
     Dosage: 350 MG, UNK
     Route: 042
     Dates: start: 20041027, end: 20041028
  3. RED BLOOD CELLS [Concomitant]
     Dosage: 5 U, UNK
     Route: 042
     Dates: start: 20041028
  4. MIDAZOLAM HCL [Concomitant]
     Dosage: UNK
     Route: 042
     Dates: start: 20041027, end: 20041028
  5. HEPARIN [Concomitant]
     Dosage: 33000 U, UNK
     Dates: start: 20041027, end: 20041028
  6. INSULIN [INSULIN] [Concomitant]
     Dosage: 10 U, UNK
     Route: 042
     Dates: start: 20041027, end: 20041028
  7. MANNITOL [Concomitant]
     Dosage: UNK
     Route: 042
     Dates: start: 20041027, end: 20041028
  8. PLASMA [Concomitant]
     Dosage: 16 U, UNK
     Route: 042
     Dates: start: 20041028
  9. ISOVUE-300 [Concomitant]
     Indication: COMPUTERISED TOMOGRAM
     Dosage: 125 ML, UNK
     Dates: start: 20041027
  10. TRASYLOL [Suspect]
     Dosage: 25ML/HR INFUSION
     Route: 042
     Dates: start: 20041027, end: 20041028
  11. DOPAMINE HCL [Concomitant]
     Dosage: UNK
     Route: 042
     Dates: start: 20041027, end: 20041028
  12. FENTANYL [Concomitant]
     Dosage: UNK
     Route: 042
     Dates: start: 20041027, end: 20041028
  13. PROPOFOL [Concomitant]
     Dosage: UNK
     Dates: start: 20041027, end: 20041028
  14. FORANE [Concomitant]
     Dosage: INHALATION
     Dates: start: 20041027, end: 20041028
  15. POTASSIUM CHLORIDE [Concomitant]
     Dosage: UNK
     Route: 042
     Dates: start: 20041027, end: 20041028
  16. CRYOPRECIPITATES [Concomitant]
     Dosage: 300 ML, UNK
     Route: 042
     Dates: start: 20041028
  17. TRASYLOL [Suspect]
     Indication: AORTIC SURGERY
     Dosage: 1.5 ML, TEST DOSE
     Route: 042
     Dates: start: 20041027, end: 20041028
  18. INSULIN [INSULIN] [Concomitant]
     Dosage: 15U/HOUR
     Route: 042
     Dates: start: 20041027, end: 20041028
  19. GENTAMICIN [Concomitant]
     Dosage: UNK
     Route: 042
     Dates: start: 20041027, end: 20041028
  20. SUCCINYLCHOLINE CHLORIDE [Concomitant]
     Dosage: 160
     Route: 042
     Dates: start: 20041027, end: 20041028
  21. ZEMURON [Concomitant]
     Dosage: UNK
     Route: 042
     Dates: start: 20041027, end: 20041028
  22. CLEOCIN [Concomitant]
     Dosage: 600 MG, UNK
     Route: 042
     Dates: start: 20041027, end: 20041028

REACTIONS (14)
  - UNEVALUABLE EVENT [None]
  - NERVOUSNESS [None]
  - PSYCHIATRIC SYMPTOM [None]
  - FEAR [None]
  - PAIN [None]
  - ANHEDONIA [None]
  - INJURY [None]
  - EMOTIONAL DISTRESS [None]
  - MULTI-ORGAN FAILURE [None]
  - RENAL FAILURE [None]
  - RENAL INJURY [None]
  - ANXIETY [None]
  - DEPRESSION [None]
  - FEAR OF DEATH [None]
